FAERS Safety Report 8831618 (Version 1)
Quarter: 2012Q4

REPORT INFORMATION
  Report Type: 
  Country: IT (occurrence: IT)
  Receive Date: 20121009
  Receipt Date: 20121009
  Transmission Date: 20130627
  Serious: Yes (Other)
  Sender: FDA-Public Use
  Company Number: IT-ELI_LILLY_AND_COMPANY-IT201210001338

PATIENT
  Age: 73 Year
  Sex: Female

DRUGS (3)
  1. GEMCITABINE HYDROCHLORIDE [Suspect]
     Indication: VULVAL CANCER
     Dosage: 1000 mg/m2, other
  2. CISPLATIN [Concomitant]
     Indication: VULVAL CANCER
     Dosage: 75 mg/m2, other
  3. CAPECITABINE [Concomitant]

REACTIONS (4)
  - Neoplasm progression [Unknown]
  - Neutropenia [Unknown]
  - Anaemia [Unknown]
  - Off label use [Unknown]
